FAERS Safety Report 22166639 (Version 2)
Quarter: 2023Q2

REPORT INFORMATION
  Report Type: Spontaneous
  Country: GB (occurrence: None)
  Receive Date: 20230403
  Receipt Date: 20230407
  Transmission Date: 20230722
  Serious: Yes (Other)
  Sender: FDA-Public Use
  Company Number: GB-ROCHE-3318892

PATIENT
  Sex: Male

DRUGS (9)
  1. OCREVUS [Suspect]
     Active Substance: OCRELIZUMAB
     Indication: Relapsing-remitting multiple sclerosis
     Route: 042
     Dates: start: 202208, end: 202210
  2. AZATHIOPRINE [Concomitant]
     Active Substance: AZATHIOPRINE
  3. COLCHICINE [Concomitant]
     Active Substance: COLCHICINE
  4. PREDNISOLONE [Concomitant]
     Active Substance: PREDNISOLONE
  5. ALENDRONIC ACID [Concomitant]
     Active Substance: ALENDRONIC ACID
  6. APIXABAN [Concomitant]
     Active Substance: APIXABAN
  7. ACYCLOVIR [Concomitant]
     Active Substance: ACYCLOVIR
  8. CALCIUM CARBONATE\CHOLECALCIFEROL [Concomitant]
     Active Substance: CALCIUM CARBONATE\CHOLECALCIFEROL
  9. OMEPRAZOLE [Concomitant]
     Active Substance: OMEPRAZOLE

REACTIONS (3)
  - Behcet^s syndrome [Not Recovered/Not Resolved]
  - Myocarditis [Recovered/Resolved]
  - Chest pain [Unknown]

NARRATIVE: CASE EVENT DATE: 20221014
